FAERS Safety Report 6382188-9 (Version None)
Quarter: 2009Q3

REPORT INFORMATION
  Report Type: 
  Country: None (occurrence: None)
  Receive Date: 20090930
  Receipt Date: 20090917
  Transmission Date: 20100115
  Serious: Yes (Disabling, Other)
  Sender: FDA-Public Use
  Company Number: FR-PFIZER INC-2009243778

PATIENT
  Age: 33 Year

DRUGS (3)
  1. CHAMPIX [Suspect]
     Indication: SMOKING CESSATION THERAPY
     Dosage: UNK
     Route: 048
     Dates: start: 20090510, end: 20090517
  2. CHAMPIX [Suspect]
     Dosage: 1 MG, 2X/DAY
     Dates: start: 20090518, end: 20090527
  3. CHAMPIX [Suspect]
     Dosage: 1.5 MG, 1X/DAY
     Dates: start: 20090528, end: 20090717

REACTIONS (3)
  - MAJOR DEPRESSION [None]
  - MORBID THOUGHTS [None]
  - SUICIDAL IDEATION [None]
